FAERS Safety Report 9517441 (Version 2)
Quarter: 2013Q3

REPORT INFORMATION
  Report Type: Report from Study
  Country: NL (occurrence: NL)
  Receive Date: 20130911
  Receipt Date: 20130918
  Transmission Date: 20140515
  Serious: Yes (Other)
  Sender: FDA-Public Use
  Company Number: NL-GILEAD-2013-0082846

PATIENT
  Age: 75 Year
  Sex: Female

DRUGS (4)
  1. BLINDED AMBRISENTAN [Suspect]
     Indication: PULMONARY ARTERIAL HYPERTENSION
     Dosage: UNK UNKNOWN, UNK
     Route: 048
     Dates: start: 20111025
  2. BLINDED CANDESARTAN [Suspect]
     Indication: PULMONARY ARTERIAL HYPERTENSION
     Dosage: UNK UNKNOWN, UNK
     Route: 048
     Dates: start: 20111025
  3. BLINDED PLACEBO [Suspect]
     Indication: PULMONARY ARTERIAL HYPERTENSION
     Dosage: UNK UNKNOWN, UNK
     Route: 048
     Dates: start: 20111025
  4. BLINDED TADALAFIL [Suspect]
     Indication: PULMONARY ARTERIAL HYPERTENSION
     Dosage: UNK UNKNOWN, UNK
     Route: 048
     Dates: start: 20111025

REACTIONS (1)
  - Metastatic neoplasm [Recovering/Resolving]
